FAERS Safety Report 24036094 (Version 1)
Quarter: 2024Q3

REPORT INFORMATION
  Report Type: Spontaneous
  Country: TR (occurrence: TR)
  Receive Date: 20240701
  Receipt Date: 20240701
  Transmission Date: 20241017
  Serious: Yes (Hospitalization, Other)
  Sender: ANI
  Company Number: TR-ANIPHARMA-2024-TR-000056

PATIENT
  Age: 60 Year
  Sex: Female

DRUGS (5)
  1. LITHIUM [Suspect]
     Active Substance: LITHIUM
     Indication: Bipolar disorder
     Dosage: 300 MG ON ALTERNATE DAYS
  2. QUETIAPINE [Concomitant]
     Active Substance: QUETIAPINE
     Dosage: 100 MG DAILY
  3. ALPRAZOLAM [Concomitant]
     Active Substance: ALPRAZOLAM
     Dosage: 1 MG DAILY
  4. MIRTAZAPINE [Concomitant]
     Active Substance: MIRTAZAPINE
     Dosage: 15 MG DAILY
  5. TRIFLUOPERAZINE [Concomitant]
     Active Substance: TRIFLUOPERAZINE HYDROCHLORIDE
     Dosage: 1 MG DAILY

REACTIONS (1)
  - Catatonia [Recovered/Resolved]
